FAERS Safety Report 5343459-8 (Version None)
Quarter: 2007Q2

REPORT INFORMATION
  Report Type: 
  Country: None (occurrence: None)
  Receive Date: 20070604
  Receipt Date: 20070523
  Transmission Date: 20071010
  Serious: Yes (Other)
  Sender: FDA-Public Use
  Company Number: PHHO2007BR08814

PATIENT
  Age: 47 Year
  Sex: Female

DRUGS (2)
  1. ZELMAC / HTF 919A [Suspect]
     Indication: COLITIS
     Dosage: 6 MG, BID
     Route: 048
     Dates: start: 20070522
  2. NIMESULIDE [Concomitant]

REACTIONS (2)
  - HAEMATOCHEZIA [None]
  - NAUSEA [None]
